FAERS Safety Report 12707173 (Version 2)
Quarter: 2016Q4

REPORT INFORMATION
  Report Type: Spontaneous
  Country: US (occurrence: US)
  Receive Date: 20160901
  Receipt Date: 20161028
  Transmission Date: 20170207
  Serious: Yes (Hospitalization)
  Sender: FDA-Public Use
  Company Number: US-BAYER-2016-167217

PATIENT
  Age: 16 Year
  Sex: Male

DRUGS (1)
  1. ACETYLSALICYLIC ACID({=100 MG) [Suspect]
     Active Substance: ASPIRIN
     Dosage: 135 G, UNK
     Route: 048

REACTIONS (12)
  - Pulmonary oedema [None]
  - Visual impairment [None]
  - Mental status changes [None]
  - Toxicity to various agents [None]
  - Electrocardiogram QT prolonged [None]
  - Respiratory alkalosis [None]
  - Overdose [None]
  - Seizure [None]
  - Tinnitus [None]
  - Acute kidney injury [None]
  - Headache [None]
  - Chills [None]
